FAERS Safety Report 14946811 (Version 7)
Quarter: 2018Q3

REPORT INFORMATION
  Report Type: Report from Study
  Country: CA (occurrence: CA)
  Receive Date: 20180529
  Receipt Date: 20180828
  Transmission Date: 20181010
  Serious: Yes (Hospitalization)
  Sender: FDA-Public Use
  Company Number: CA-JNJFOC-20180531342

PATIENT
  Age: 66 Year
  Sex: Male
  Weight: 83 kg

DRUGS (4)
  1. REMICADE [Suspect]
     Active Substance: INFLIXIMAB
     Indication: CROHN^S DISEASE
     Dosage: STRENGTH = 100 MG
     Route: 042
  2. REMICADE [Suspect]
     Active Substance: INFLIXIMAB
     Indication: CROHN^S DISEASE
     Dosage: 500 MG
     Route: 042
  3. REMICADE [Suspect]
     Active Substance: INFLIXIMAB
     Indication: CROHN^S DISEASE
     Dosage: STRENGTH = 100 MG
     Route: 042
     Dates: start: 20161216
  4. ENTOCORT [Concomitant]
     Active Substance: BUDESONIDE
     Route: 048

REACTIONS (8)
  - Clostridium difficile infection [Unknown]
  - Frequent bowel movements [Recovering/Resolving]
  - Blood pressure fluctuation [Recovered/Resolved]
  - Drug effect decreased [Unknown]
  - Gastroenteritis salmonella [Unknown]
  - General physical health deterioration [Recovering/Resolving]
  - Hospitalisation [Unknown]
  - Addison^s disease [Recovering/Resolving]

NARRATIVE: CASE EVENT DATE: 2018
